FAERS Safety Report 21843434 (Version 1)
Quarter: 2023Q1

REPORT INFORMATION
  Report Type: Spontaneous
  Country: US (occurrence: US)
  Receive Date: 20230110
  Receipt Date: 20230110
  Transmission Date: 20230418
  Serious: Yes (Other)
  Sender: FDA-Public Use
  Company Number: US-JUBILANT CADISTA PHARMACEUTICALS-2023JUB00002

PATIENT
  Age: 36 Year
  Sex: Male
  Weight: 193 kg

DRUGS (7)
  1. OXCARBAZEPINE [Suspect]
     Active Substance: OXCARBAZEPINE
     Indication: Trigeminal neuritis
     Dosage: 1 DOSAGE FORM, EVERY 12 HOUR
     Route: 048
  2. NORTRIPTYLINE [Concomitant]
     Active Substance: NORTRIPTYLINE
     Indication: Trigeminal neuritis
     Dosage: 25 MG, EVERY 12 HOUR
     Route: 048
  3. GABAPENTIN [Concomitant]
     Active Substance: GABAPENTIN
     Indication: Trigeminal neuritis
     Dosage: 600 MG, EVERY 8 HOUR
     Route: 048
  4. LIDOCAINE VISCOUS [Concomitant]
     Active Substance: LIDOCAINE HYDROCHLORIDE
     Indication: Analgesic therapy
     Dosage: UNK, AS NEEDED, EVERY 4 TO 6 HOURS
     Route: 048
  5. VALACYCLOVIR HYDROCHLORIDE [Concomitant]
     Active Substance: VALACYCLOVIR HYDROCHLORIDE
     Indication: Varicella zoster virus infection
     Dosage: 1 G, EVERY 8 HOUR
     Route: 048
  6. BACLOFEN [Concomitant]
     Active Substance: BACLOFEN
     Indication: Trigeminal neuritis
     Dosage: 10 MG, EVERY 8 HOUR
     Route: 048
  7. SERTRALINE [Concomitant]
     Active Substance: SERTRALINE HYDROCHLORIDE
     Indication: Anxiety
     Dosage: 100 MG, 1X/DAY

REACTIONS (2)
  - Angioedema [Recovered/Resolved]
  - Necrosis [Recovered/Resolved with Sequelae]
